FAERS Safety Report 25225446 (Version 1)
Quarter: 2025Q2

REPORT INFORMATION
  Report Type: Other
  Country: US (occurrence: US)
  Receive Date: 20250422
  Receipt Date: 20250422
  Transmission Date: 20250716
  Serious: Yes (Other)
  Sender: COREPHARMA LLC
  Company Number: US-CorePharma LLC-2175359

PATIENT
  Age: 81 Year
  Sex: Female

DRUGS (6)
  1. LISINOPRIL [Suspect]
     Active Substance: LISINOPRIL
     Indication: Product used for unknown indication
  2. AMLODIPINE [Suspect]
     Active Substance: AMLODIPINE BESYLATE
  3. SIMVASTATIN [Suspect]
     Active Substance: SIMVASTATIN
  4. ASPIRIN [Suspect]
     Active Substance: ASPIRIN
  5. OSIMERTINIB [Suspect]
     Active Substance: OSIMERTINIB
  6. LABETALOL [Suspect]
     Active Substance: LABETALOL

REACTIONS (1)
  - Subacute cutaneous lupus erythematosus [Recovered/Resolved]
